FAERS Safety Report 16717138 (Version 1)
Quarter: 2019Q3

REPORT INFORMATION
  Report Type: Report from Study
  Country: US (occurrence: US)
  Receive Date: 20190819
  Receipt Date: 20190819
  Transmission Date: 20191005
  Serious: Yes (Other)
  Sender: FDA-Public Use
  Company Number: US-SHIRE-2014BAX062647

PATIENT
  Age: 61 Year
  Sex: Female

DRUGS (4)
  1. HUMAN NORMAL IMMUNOGLOBULIN; LIQUID [Suspect]
     Active Substance: HUMAN IMMUNOGLOBULIN G
     Indication: IMMUNODEFICIENCY COMMON VARIABLE
     Dosage: 1X A MONTH
     Route: 042
     Dates: start: 20140911, end: 20140911
  2. HUMAN NORMAL IMMUNOGLOBULIN; LIQUID [Suspect]
     Active Substance: HUMAN IMMUNOGLOBULIN G
     Dosage: 1X A MONTH
     Route: 042
  3. HUMAN NORMAL IMMUNOGLOBULIN; LIQUID [Suspect]
     Active Substance: HUMAN IMMUNOGLOBULIN G
     Dosage: 1X A MONTH
     Route: 042
     Dates: start: 20141112
  4. HUMAN NORMAL IMMUNOGLOBULIN; LIQUID [Suspect]
     Active Substance: HUMAN IMMUNOGLOBULIN G
     Dosage: 30GRAMEVERY 4 WK
     Route: 042
     Dates: start: 20141114

REACTIONS (22)
  - Herpes zoster [Not Recovered/Not Resolved]
  - Influenza like illness [Not Recovered/Not Resolved]
  - Constipation [Not Recovered/Not Resolved]
  - Impaired healing [Unknown]
  - Infection [Not Recovered/Not Resolved]
  - Negative thoughts [Not Recovered/Not Resolved]
  - Confusional state [Not Recovered/Not Resolved]
  - Tooth fracture [Recovered/Resolved]
  - Poor venous access [Not Recovered/Not Resolved]
  - Psychomotor hyperactivity [Not Recovered/Not Resolved]
  - Feeling abnormal [Not Recovered/Not Resolved]
  - Headache [Not Recovered/Not Resolved]
  - Infusion related reaction [Unknown]
  - Pain [Not Recovered/Not Resolved]
  - Incorrect drug administration rate [Unknown]
  - Arthritis [Not Recovered/Not Resolved]
  - Abnormal dreams [Not Recovered/Not Resolved]
  - Urticaria [Unknown]
  - Sinus congestion [Not Recovered/Not Resolved]
  - Dehydration [Not Recovered/Not Resolved]
  - Amnesia [Not Recovered/Not Resolved]
  - Blood pressure increased [Not Recovered/Not Resolved]

NARRATIVE: CASE EVENT DATE: 20140911
